FAERS Safety Report 14894852 (Version 1)
Quarter: 2018Q2

REPORT INFORMATION
  Report Type: Spontaneous
  Country: US (occurrence: US)
  Receive Date: 20180515
  Receipt Date: 20180515
  Transmission Date: 20180711
  Serious: No
  Sender: FDA-Public Use
  Company Number: US-ASTRAZENECA-2018SE60852

PATIENT
  Age: 84 Year
  Sex: Female

DRUGS (2)
  1. ZOMIG [Suspect]
     Active Substance: ZOLMITRIPTAN
     Dosage: 5 MG, 1 SPRAY INTRANASALLY AS NEEDED UP TO 2 DOSES DAILY
     Route: 045
     Dates: start: 201804, end: 20180427
  2. PERCOCET [Concomitant]
     Active Substance: ACETAMINOPHEN\OXYCODONE HYDROCHLORIDE
     Indication: MIGRAINE

REACTIONS (2)
  - Drug dose omission [Not Recovered/Not Resolved]
  - Migraine [Not Recovered/Not Resolved]
